FAERS Safety Report 4777644-0 (Version None)
Quarter: 2005Q3

REPORT INFORMATION
  Report Type: 
  Country: None (occurrence: None)
  Receive Date: 20050921
  Receipt Date: 20050831
  Transmission Date: 20060218
  Serious: Yes (Hospitalization, Other)
  Sender: FDA-Public Use
  Company Number: USA041080898

PATIENT
  Age: 69 Year
  Sex: Female
  Weight: 64 kg

DRUGS (3)
  1. HUMALOG [Suspect]
     Dosage: 5 U/1 DAY
     Dates: start: 20040729
  2. HUMULIN N [Suspect]
     Dosage: 24 U
  3. HUMULIN R [Suspect]
     Dosage: UNK
     Dates: end: 20030101

REACTIONS (10)
  - BLOOD GLUCOSE DECREASED [None]
  - CATARACT [None]
  - DIABETES MELLITUS INADEQUATE CONTROL [None]
  - EYE HAEMORRHAGE [None]
  - FOOT FRACTURE [None]
  - GLYCOSYLATED HAEMOGLOBIN INCREASED [None]
  - ORAL INTAKE REDUCED [None]
  - PHARMACEUTICAL PRODUCT COMPLAINT [None]
  - VISUAL ACUITY REDUCED [None]
  - VITREOUS FLOATERS [None]
